FAERS Safety Report 4538104-5 (Version None)
Quarter: 2004Q4

REPORT INFORMATION
  Report Type: 
  Country: None (occurrence: None)
  Receive Date: 20041227
  Receipt Date: 20041220
  Transmission Date: 20050328
  Serious: Yes (Other)
  Sender: FDA-Public Use
  Company Number: US-BRISTOL-MYERS SQUIBB COMPANY-12801148

PATIENT
  Age: 35 Year
  Sex: Male
  Weight: 73 kg

DRUGS (1)
  1. EXCEDRIN (MIGRAINE) [Suspect]
     Indication: NASOPHARYNGITIS
     Route: 048

REACTIONS (4)
  - COUGH [None]
  - HAEMOPTYSIS [None]
  - RETCHING [None]
  - VOMITING [None]
